FAERS Safety Report 4759687-6 (Version None)
Quarter: 2005Q3

REPORT INFORMATION
  Report Type: 
  Country: None (occurrence: None)
  Receive Date: 20050826
  Receipt Date: 20050516
  Transmission Date: 20060218
  Serious: No
  Sender: FDA-Public Use
  Company Number: 214520

PATIENT

DRUGS (1)
  1. RAPTIVA (EFALIZUMAB) PWDR + SOLN, 125 MG [Suspect]
     Indication: PSORIASIS
     Dosage: 1/WEEK
     Dates: start: 20041001, end: 20041101

REACTIONS (2)
  - ARTHRITIS [None]
  - GUTTATE PSORIASIS [None]
